FAERS Safety Report 7064358-X (Version None)
Quarter: 2010Q4

REPORT INFORMATION
  Report Type: 
  Country: None (occurrence: None)
  Receive Date: 20101027
  Receipt Date: 20101018
  Transmission Date: 20110411
  Serious: Yes (Other)
  Sender: FDA-Public Use
  Company Number: JP-SANOFI-AVENTIS-2010SA056555

PATIENT
  Age: 48 Year
  Sex: Female

DRUGS (10)
  1. RIFAMPICIN [Suspect]
     Indication: TUBERCULOSIS
     Dates: start: 20090501
  2. ISONIAZID [Suspect]
     Indication: TUBERCULOSIS
     Dates: start: 20090501
  3. ETHAMBUTOL HYDROCHLORIDE [Suspect]
     Indication: TUBERCULOSIS
     Dates: start: 20090501
  4. PYRAZINAMIDE [Suspect]
     Indication: TUBERCULOSIS
     Dates: start: 20090501
  5. INFLIXIMAB [Concomitant]
     Indication: CROHN'S DISEASE
     Dates: start: 20090325
  6. AZATHIOPRINE [Concomitant]
     Indication: CROHN'S DISEASE
  7. MESALAZINE [Concomitant]
     Indication: CROHN'S DISEASE
  8. POLYGAM S/D [Concomitant]
     Dates: start: 20090501
  9. CORTICOSTEROID NOS [Concomitant]
     Dates: start: 20090501
  10. ANTIBIOTICS [Concomitant]

REACTIONS (1)
  - CHOLESTATIC LIVER INJURY [None]
